FAERS Safety Report 16898451 (Version 1)
Quarter: 2019Q4

REPORT INFORMATION
  Report Type: Spontaneous
  Country: US (occurrence: US)
  Receive Date: 20190815
  Receipt Date: 20190815
  Transmission Date: 20200122
  Serious: No
  Sender: FDA-Public Use
  Company Number: None

PATIENT
  Age: 38 Year
  Sex: Female

DRUGS (1)
  1. MYCOPHENOLATE MOF TAB 500MG [Suspect]
     Active Substance: MYCOPHENOLATE MOFETIL
     Dates: start: 20190730

REACTIONS (5)
  - Diarrhoea [None]
  - Dyspepsia [None]
  - Fatigue [None]
  - Skin discolouration [None]
  - Drug interaction [None]

NARRATIVE: CASE EVENT DATE: 20190815
